FAERS Safety Report 5301920-6 (Version None)
Quarter: 2007Q2

REPORT INFORMATION
  Report Type: 
  Country: None (occurrence: None)
  Receive Date: 20070419
  Receipt Date: 20070416
  Transmission Date: 20071010
  Serious: Yes (Death)
  Sender: FDA-Public Use
  Company Number: JP-AVENTIS-200710987JP

PATIENT

DRUGS (1)
  1. TAXOTERE [Suspect]

REACTIONS (1)
  - RADIATION PNEUMONITIS [None]
